FAERS Safety Report 7472751-6 (Version None)
Quarter: 2011Q2

REPORT INFORMATION
  Report Type: 
  Country: None (occurrence: None)
  Receive Date: 20110511
  Receipt Date: 20110502
  Transmission Date: 20111010
  Serious: Yes (Hospitalization, Other)
  Sender: FDA-Public Use
  Company Number: US-JNJFOC-20110307903

PATIENT
  Sex: Female
  Weight: 81.3 kg

DRUGS (8)
  1. PREZISTA [Suspect]
     Indication: HIV INFECTION
     Route: 065
  2. NORVIR [Concomitant]
     Indication: HIV INFECTION
     Route: 065
  3. ZITHROMAX [Concomitant]
     Route: 065
  4. TRUVADA [Concomitant]
     Indication: HIV INFECTION
  5. MARAVIROC [Concomitant]
     Indication: HIV INFECTION
     Route: 065
  6. PREZISTA [Suspect]
     Route: 065
  7. TRUVADA [Concomitant]
  8. ISENTRESS [Concomitant]
     Indication: HIV INFECTION
     Route: 065

REACTIONS (5)
  - RHABDOMYOLYSIS [None]
  - TOXIC SHOCK SYNDROME [None]
  - BLOOD LACTATE DEHYDROGENASE INCREASED [None]
  - LIVER FUNCTION TEST ABNORMAL [None]
  - RASH [None]
